FAERS Safety Report 8989767 (Version 1)
Quarter: 2012Q4

REPORT INFORMATION
  Report Type: Report from Study
  Country: US (occurrence: US)
  Receive Date: 20121228
  Receipt Date: 20121228
  Transmission Date: 20130627
  Serious: Yes (Hospitalization, Other)
  Sender: FDA-Public Use
  Company Number: US-ABBOTT-12P-163-0912868-00

PATIENT
  Sex: Male
  Weight: 108.96 kg

DRUGS (6)
  1. HUMIRA 40 MG/0.8 ML PEN [Suspect]
     Indication: RHEUMATOID ARTHRITIS
     Route: 058
     Dates: start: 2009, end: 201210
  2. HYZAAR [Suspect]
     Indication: HYPERTENSION
     Dates: end: 2012
  3. NEURONTIN [Suspect]
     Indication: NECK PAIN
     Dates: end: 2012
  4. LYRICA [Suspect]
     Indication: RHEUMATOID ARTHRITIS
     Dates: end: 2012
  5. AREVA [Suspect]
     Indication: RHEUMATOID ARTHRITIS
     Dates: end: 2012
  6. PREDNISONE [Concomitant]
     Indication: RHEUMATOID ARTHRITIS

REACTIONS (7)
  - Platelet count decreased [Recovered/Resolved]
  - Intervertebral disc degeneration [Recovered/Resolved]
  - Rash [Recovered/Resolved]
  - White blood cell count decreased [Recovered/Resolved]
  - Road traffic accident [Recovered/Resolved]
  - Neck pain [Not Recovered/Not Resolved]
  - Skin infection [Unknown]
